FAERS Safety Report 23675689 (Version 4)
Quarter: 2025Q3

REPORT INFORMATION
  Report Type: Spontaneous
  Country: US (occurrence: US)
  Receive Date: 20240327
  Receipt Date: 20250724
  Transmission Date: 20251020
  Serious: No
  Sender: SANOFI AVENTIS
  Company Number: US-SA-2024SA094069

PATIENT
  Age: 58 Year
  Sex: Male
  Weight: 79.55 kg

DRUGS (2)
  1. DUPIXENT [Suspect]
     Active Substance: DUPILUMAB
     Indication: Dermatitis atopic
     Dosage: 300 MG, QOW
     Route: 058
     Dates: start: 20240220
  2. DUPIXENT [Suspect]
     Active Substance: DUPILUMAB
     Dosage: 300 MG, Q4W
     Route: 058

REACTIONS (7)
  - Lacrimation increased [Unknown]
  - Ocular discomfort [Unknown]
  - Photophobia [Unknown]
  - Rash macular [Not Recovered/Not Resolved]
  - Accidental exposure to product [Unknown]
  - Exposure via skin contact [Unknown]
  - Off label use [Unknown]

NARRATIVE: CASE EVENT DATE: 20240101
